FAERS Safety Report 15645225 (Version 6)
Quarter: 2019Q2

REPORT INFORMATION
  Report Type: Report from Study
  Country: KR (occurrence: KR)
  Receive Date: 20181121
  Receipt Date: 20190426
  Transmission Date: 20190711
  Serious: Yes (Hospitalization)
  Sender: FDA-Public Use
  Company Number: KR-EISAI MEDICAL RESEARCH-EC-2018-047456

PATIENT
  Age: 65 Year
  Sex: Male
  Weight: 59.1 kg

DRUGS (15)
  1. ULTRACET [Concomitant]
     Active Substance: ACETAMINOPHEN\TRAMADOL HYDROCHLORIDE
  2. MAG OXIDE [Concomitant]
     Active Substance: MAGNESIUM OXIDE
  3. DEMEROL [Concomitant]
     Active Substance: MEPERIDINE HYDROCHLORIDE
  4. LENVATINIB [Suspect]
     Active Substance: LENVATINIB
     Indication: CLEAR CELL RENAL CELL CARCINOMA
     Route: 048
     Dates: start: 20180313, end: 20181029
  5. OXYCODONE [Concomitant]
     Active Substance: OXYCODONE
  6. PAMIDRONATE [Concomitant]
     Active Substance: PAMIDRONATE DISODIUM
  7. PEMBROLIZUMAB. [Suspect]
     Active Substance: PEMBROLIZUMAB
     Indication: CLEAR CELL RENAL CELL CARCINOMA
     Route: 041
     Dates: start: 20180313, end: 20181012
  8. ATOZET [Concomitant]
     Active Substance: ATORVASTATIN CALCIUM\EZETIMIBE
  9. RISPERIDONE. [Concomitant]
     Active Substance: RISPERIDONE
  10. QUETIAPINE. [Concomitant]
     Active Substance: QUETIAPINE
  11. LORAZEPAM. [Concomitant]
     Active Substance: LORAZEPAM
  12. PHOSTEN [Concomitant]
  13. TWYNSTA [Concomitant]
     Active Substance: AMLODIPINE BESYLATE\TELMISARTAN
  14. METFORMIN [Concomitant]
     Active Substance: METFORMIN HYDROCHLORIDE
  15. HALOPERIDOL. [Concomitant]
     Active Substance: HALOPERIDOL

REACTIONS (4)
  - Pleural effusion [Recovering/Resolving]
  - Electrolyte imbalance [Recovered/Resolved]
  - Non-cardiac chest pain [Not Recovered/Not Resolved]
  - Abdominal pain [Recovered/Resolved]

NARRATIVE: CASE EVENT DATE: 20181104
